FAERS Safety Report 9517355 (Version 1)
Quarter: 2013Q1

REPORT INFORMATION
  Report Type: Spontaneous
  Country: US (occurrence: None)
  Receive Date: 20130305
  Receipt Date: 20130305
  Transmission Date: 20140127
  Serious: Yes (Hospitalization)
  Sender: FDA-Public Use
  Company Number: 163-21880-12122195

PATIENT
  Age: 61 Year
  Sex: Female
  Weight: 63.05 kg

DRUGS (2)
  1. REVLIMID [Suspect]
     Indication: PLASMA CELL MYELOMA
     Dosage: 14 IN 21 D
     Route: 048
     Dates: start: 20120120
  2. NEUPOGEN (FILGRASTIM)(INJECTION) [Concomitant]

REACTIONS (2)
  - Device related infection [None]
  - Dyspnoea [None]
